FAERS Safety Report 8060667-6 (Version None)
Quarter: 2012Q1

REPORT INFORMATION
  Report Type: 
  Country: None (occurrence: None)
  Receive Date: 20120120
  Receipt Date: 20120119
  Transmission Date: 20120608
  Serious: Yes (Other)
  Sender: FDA-Public Use
  Company Number: ES-GILEAD-2012-0049447

PATIENT
  Age: 53 Year
  Sex: Male

DRUGS (8)
  1. ISENTRESS [Suspect]
     Dosage: 400 MG, UNK
     Route: 065
     Dates: start: 20110101
  2. METHOTREXATE [Suspect]
     Indication: PSORIATIC ARTHROPATHY
     Route: 065
     Dates: start: 20110101
  3. ASPIRIN [Concomitant]
     Dosage: 100 MG, UNK
  4. PRAVASTATINA [Concomitant]
  5. BISOPROLOL [Concomitant]
     Indication: HIV INFECTION
  6. ACFOL [Concomitant]
     Dosage: 5 MG, UNK
  7. TRUVADA [Suspect]
     Route: 065
     Dates: start: 20110101
  8. METHOTREXATE [Suspect]

REACTIONS (1)
  - HAEMOLYTIC ANAEMIA [None]
